FAERS Safety Report 11236465 (Version 4)
Quarter: 2015Q3

REPORT INFORMATION
  Report Type: Spontaneous
  Country: JP (occurrence: JP)
  Receive Date: 20150702
  Receipt Date: 20150811
  Transmission Date: 20151125
  Serious: Yes (Hospitalization)
  Sender: FDA-Public Use
  Company Number: JP-GILEAD-2015-0160819

PATIENT
  Age: 45 Year
  Sex: Male
  Weight: 100.4 kg

DRUGS (25)
  1. SOVALDI [Suspect]
     Active Substance: SOFOSBUVIR
     Indication: CHRONIC HEPATITIS C
     Dosage: 400 MG, QD
     Route: 048
     Dates: start: 20150626
  2. COPEGUS [Suspect]
     Active Substance: RIBAVIRIN
     Dosage: 800 MG, QD
     Route: 048
  3. METGLUCO [Concomitant]
     Active Substance: METFORMIN HYDROCHLORIDE
     Indication: DIABETES MELLITUS
     Dosage: 500 MG, BID
     Route: 048
  4. COPEGUS [Suspect]
     Active Substance: RIBAVIRIN
     Indication: CHRONIC HEPATITIS C
     Dosage: 1000MG, 2 TABS AM, 3TABS  PM
     Route: 048
     Dates: start: 20150626
  5. GENTAMICIN SULFATE OPHTHALMIC [Concomitant]
     Dosage: UNK
     Route: 062
  6. SEIBULE [Concomitant]
     Active Substance: MIGLITOL
     Indication: DIABETES MELLITUS
     Dosage: 50 MG, TID
     Route: 048
  7. SILECE [Concomitant]
     Active Substance: FLUNITRAZEPAM
     Dosage: 4 MG, QHS
     Route: 065
  8. AMOXAN [Concomitant]
     Active Substance: AMOXAPINE
     Dosage: 50 MG, UNK
     Route: 065
  9. LORAZEPAM. [Concomitant]
     Active Substance: LORAZEPAM
     Dosage: 1 MG, UNK
  10. CERCINE [Concomitant]
     Active Substance: DIAZEPAM
     Dosage: 5 MG, PRN
     Route: 048
  11. URSODEOXYCHOLIC ACID [Concomitant]
     Active Substance: URSODIOL
     Dosage: 1 DF, TID
     Route: 048
  12. JANUVIA [Concomitant]
     Active Substance: SITAGLIPTIN PHOSPHATE
     Indication: DIABETES MELLITUS
     Dosage: 50 MG, QD
     Route: 048
  13. INVEGA [Concomitant]
     Active Substance: PALIPERIDONE
     Dosage: 9 MG, QD
     Route: 065
  14. AKINETON [Concomitant]
     Active Substance: BIPERIDEN HYDROCHLORIDE
     Dosage: 2 MG, BID
     Route: 065
  15. STRONGER NEO-MINOPHAGEN C [Concomitant]
     Active Substance: AMMONIUM GLYCYRRHIZATE\CYSTEINE HYDROCHLORIDE\GLYCINE
     Dosage: UNK
     Route: 042
  16. REBAMIPIDE [Concomitant]
     Active Substance: REBAMIPIDE
     Dosage: 300 MG, TID
     Route: 065
  17. MAGLAX [Concomitant]
     Active Substance: MAGNESIUM OXIDE
     Dosage: 990 MG, TID
     Route: 065
  18. ZYPREXA [Concomitant]
     Active Substance: OLANZAPINE
     Dosage: 20 MG, QHS
     Route: 065
  19. SENNOSIDE                          /00571901/ [Concomitant]
     Active Substance: SENNOSIDES A AND B
     Dosage: 12 MG, QHS
     Route: 065
  20. GENTACIN [Concomitant]
     Active Substance: GENTAMICIN SULFATE
     Dosage: UNK, BID
     Route: 062
  21. ZOLPIDEM TARTRATE. [Concomitant]
     Active Substance: ZOLPIDEM TARTRATE
     Dosage: 10 MG, QHS
  22. LEVOTOMIN                          /00038602/ [Concomitant]
     Active Substance: LEVOMEPROMAZINE
     Dosage: 25 MG, QHS
     Route: 065
  23. EURODIN                            /00401202/ [Concomitant]
     Active Substance: DIHYDROERGOCRISTINE MESYLATE
     Dosage: 2 MG, QHS
     Route: 065
  24. CYMBALTA [Concomitant]
     Active Substance: DULOXETINE HYDROCHLORIDE
     Dosage: 60 MG, QD
  25. INVEGA [Concomitant]
     Active Substance: PALIPERIDONE
     Dosage: 3 MG, QD
     Route: 065

REACTIONS (3)
  - Rash [Recovering/Resolving]
  - Muscular weakness [Recovered/Resolved]
  - Hypoaesthesia [Recovering/Resolving]

NARRATIVE: CASE EVENT DATE: 20150627
